FAERS Safety Report 10084649 (Version 5)
Quarter: 2015Q1

REPORT INFORMATION
  Report Type: Report from Study
  Country: US (occurrence: US)
  Receive Date: 20140417
  Receipt Date: 20150202
  Transmission Date: 20150720
  Serious: Yes (Hospitalization)
  Sender: FDA-Public Use
  Company Number: US-SANOFI-AVENTIS-2013SA062305

PATIENT
  Age: 62 Year
  Sex: Female

DRUGS (2)
  1. AUBAGIO [Suspect]
     Active Substance: TERIFLUNOMIDE
     Indication: MULTIPLE SCLEROSIS
     Route: 048
     Dates: start: 20130103
  2. ALL OTHER THERAPEUTIC PRODUCTS [Suspect]
     Active Substance: UNSPECIFIED INGREDIENT

REACTIONS (24)
  - Dyskinesia [Recovered/Resolved]
  - Gait disturbance [Recovering/Resolving]
  - Speech disorder [Unknown]
  - Headache [Recovered/Resolved]
  - Temperature intolerance [Unknown]
  - Hypoaesthesia [Unknown]
  - Multiple sclerosis relapse [Recovered/Resolved]
  - Musculoskeletal pain [Recovering/Resolving]
  - Blood cholesterol increased [Unknown]
  - Blood triglycerides increased [Unknown]
  - Hyperaesthesia [Unknown]
  - White blood cell disorder [Unknown]
  - Back pain [Unknown]
  - Thrombosis [Unknown]
  - Unevaluable event [Unknown]
  - Weight increased [Unknown]
  - Pain [Unknown]
  - Feeling hot [Unknown]
  - Grip strength decreased [Unknown]
  - Peroneal nerve palsy [Unknown]
  - Paraesthesia [Unknown]
  - Nausea [Unknown]
  - Skin discolouration [Unknown]
  - Multiple sclerosis [Unknown]

NARRATIVE: CASE EVENT DATE: 201302
